FAERS Safety Report 7327272 (Version 8)
Quarter: 2013Q1

REPORT INFORMATION
  Report Type: Spontaneous
  Country: HR (occurrence: HR)
  Receive Date: 20100322
  Receipt Date: 20130107
  Transmission Date: 20140127
  Serious: Yes (Life-Threatening, Hospitalization, Disabling, Other)
  Sender: FDA-Public Use
  Company Number: HR-ABBOTT-10P-216-0632387-00

PATIENT
  Age: 55 Year
  Sex: Male

DRUGS (8)
  1. HUMIRA [Suspect]
     Indication: RHEUMATOID ARTHRITIS
     Dates: start: 20100128
  2. MEDROL [Concomitant]
     Indication: RHEUMATOID ARTHRITIS
     Dosage: 4 MG X 1
     Dates: end: 20100310
  3. FOISCIN [Concomitant]
     Indication: PRODUCT USED FOR UNKNOWN INDICATION
     Dosage: 2X1
  4. FERRUM LEK [Concomitant]
     Indication: PRODUCT USED FOR UNKNOWN INDICATION
     Dosage: 1X1
     Dates: end: 20100310
  5. NORMABEL [Concomitant]
     Indication: PRODUCT USED FOR UNKNOWN INDICATION
     Dosage: 1X1
     Dates: end: 20100310
  6. SANVAL [Concomitant]
     Indication: PRODUCT USED FOR UNKNOWN INDICATION
     Dosage: 1X1
  7. ANTPYRETIC [Concomitant]
     Indication: PRODUCT USED FOR UNKNOWN INDICATION
  8. ARAVA [Concomitant]
     Indication: RHEUMATOID ARTHRITIS

REACTIONS (20)
  - Quadriparesis [Unknown]
  - Pyrexia [Not Recovered/Not Resolved]
  - Sepsis [Unknown]
  - Coma [Recovered/Resolved]
  - General physical health deterioration [Unknown]
  - Paralysis [Unknown]
  - Impaired self-care [Unknown]
  - Toxicity to various agents [Unknown]
  - Paraparesis [Not Recovered/Not Resolved]
  - Denervation atrophy [Recovering/Resolving]
  - Upper motor neurone lesion [Unknown]
  - Toxic neuropathy [Unknown]
  - Toxic neuropathy [Unknown]
  - Feeling abnormal [Unknown]
  - Wheelchair user [Not Recovered/Not Resolved]
  - Muscular weakness [Unknown]
  - Skin atrophy [Unknown]
  - Joint contracture [Unknown]
  - Hypoaesthesia [Unknown]
  - Hypoaesthesia [Unknown]
